FAERS Safety Report 6732102-9 (Version None)
Quarter: 2010Q2

REPORT INFORMATION
  Report Type: 
  Country: None (occurrence: None)
  Receive Date: 20100519
  Receipt Date: 20100510
  Transmission Date: 20101027
  Serious: Yes (Other)
  Sender: FDA-Public Use
  Company Number: US-PFIZER INC-2010005413

PATIENT
  Sex: Female

DRUGS (5)
  1. SUTENT [Suspect]
     Indication: RENAL CELL CARCINOMA
     Dosage: 50 MG, 1X/DAY, 4-2 CYCLE
     Dates: start: 20100107
  2. PRILOSEC [Concomitant]
     Dosage: 20 MG, 1X/DAY
  3. NORVASC [Concomitant]
     Dosage: 20 MG, 1X/DAY
  4. MAXZIDE [Concomitant]
     Dosage: 37.5/25 MG DAILY
  5. PAXIL [Concomitant]
     Dosage: 20 MG, 1X/DAY

REACTIONS (6)
  - ASTHENIA [None]
  - CYSTITIS [None]
  - HYPERTENSION [None]
  - IMPAIRED HEALING [None]
  - PARALYSIS [None]
  - PERIORBITAL OEDEMA [None]
